FAERS Safety Report 13668164 (Version 2)
Quarter: 2017Q3

REPORT INFORMATION
  Report Type: Spontaneous
  Country: US (occurrence: US)
  Receive Date: 20170620
  Receipt Date: 20170908
  Transmission Date: 20171127
  Serious: No
  Sender: FDA-Public Use
  Company Number: US-PFIZER INC-2017267143

PATIENT
  Age: 76 Year
  Sex: Female

DRUGS (1)
  1. IBRANCE [Suspect]
     Active Substance: PALBOCICLIB
     Indication: BREAST CANCER
     Dosage: 125 MG, DAILY (1 QD)
     Route: 048
     Dates: start: 20160503

REACTIONS (5)
  - Pain [Unknown]
  - Alopecia [Unknown]
  - Dry eye [Unknown]
  - Fatigue [Unknown]
  - Headache [Unknown]
